FAERS Safety Report 22924371 (Version 8)
Quarter: 2024Q2

REPORT INFORMATION
  Report Type: Report from Study
  Country: CA (occurrence: CA)
  Receive Date: 20230908
  Receipt Date: 20240624
  Transmission Date: 20240716
  Serious: Yes (Hospitalization, Other)
  Sender: FDA-Public Use
  Company Number: CA-JNJFOC-20230751962

PATIENT
  Age: 67 Year
  Sex: Male
  Weight: 80 kg

DRUGS (1)
  1. REMICADE [Suspect]
     Active Substance: INFLIXIMAB
     Indication: Crohn^s disease
     Dosage: INFUSION ON 25-OCT-2023.?EXPIRY DATE: MAR-2026?BATCH NUMBER : 23G067, EXPIRY DATE: 31-OCT-2026
     Route: 041
     Dates: start: 20200223

REACTIONS (3)
  - Prostate cancer [Recovered/Resolved]
  - Bladder operation [Unknown]
  - Cytology abnormal [Unknown]

NARRATIVE: CASE EVENT DATE: 20230101
